FAERS Safety Report 5546761-X (Version None)
Quarter: 2007Q4

REPORT INFORMATION
  Report Type: 
  Country: None (occurrence: None)
  Receive Date: 20071123
  Receipt Date: 20070110
  Transmission Date: 20080405
  Serious: Yes (Other)
  Sender: FDA-Public Use
  Company Number: US-JNJFOC-20070102371

PATIENT
  Age: 48 Year
  Sex: Male

DRUGS (9)
  1. LEVAQUIN [Suspect]
     Indication: SINUSITIS
     Dates: start: 20061215
  2. BYETTA [Suspect]
     Indication: TYPE 2 DIABETES MELLITUS
     Dosage: 5 UG, 2 IN 1 DAY, SUBCUTANEOUS; 10 UG, 2 IN 1 DAY, SUBCUTANEOUS
     Route: 058
     Dates: start: 20061112, end: 20061206
  3. BYETTA [Suspect]
     Indication: TYPE 2 DIABETES MELLITUS
     Dosage: 5 UG, 2 IN 1 DAY, SUBCUTANEOUS; 10 UG, 2 IN 1 DAY, SUBCUTANEOUS
     Route: 058
     Dates: start: 20061207
  4. BIAXIN [Suspect]
     Indication: SINUSITIS
     Dates: start: 20061211
  5. ACTOS [Suspect]
     Indication: DRUG USE FOR UNKNOWN INDICATION
     Dates: start: 20061001
  6. METFORMIN (METFORMIN) UNSPECIFIED [Suspect]
     Indication: DRUG USE FOR UNKNOWN INDICATION
  7. INSULIN (INSULIN) UNSPECIFIED [Suspect]
     Indication: DRUG USE FOR UNKNOWN INDICATION
  8. ZETIA (CHOLESTEROL- AND TRIGLYCERIDE REDUCERS) UNSPECIFIED [Concomitant]
  9. LIPITOR (ATORVASTATIN) UNSPECIFIED [Concomitant]

REACTIONS (2)
  - BLOOD GLUCOSE DECREASED [None]
  - DRUG INTERACTION [None]
